FAERS Safety Report 18518607 (Version 4)
Quarter: 2024Q1

REPORT INFORMATION
  Report Type: Spontaneous
  Country: US (occurrence: US)
  Receive Date: 20201118
  Receipt Date: 20240328
  Transmission Date: 20240410
  Serious: Yes (Life-Threatening, Other)
  Sender: FDA-Public Use
  Company Number: US-BRISTOL-MYERS SQUIBB COMPANY-BMS-2020-093402

PATIENT
  Age: 43 Year
  Sex: Female

DRUGS (6)
  1. BELATACEPT [Suspect]
     Active Substance: BELATACEPT
     Indication: Renal transplant
     Dosage: 5 MILLIGRAM/KILOGRAM, Q4WK
  2. MYCOPHENOLATE MOFETIL [Suspect]
     Active Substance: MYCOPHENOLATE MOFETIL
     Indication: Renal transplant
     Dosage: 1000 MILLIGRAMS, 12 HOURS
  3. MYCOPHENOLATE MOFETIL [Suspect]
     Active Substance: MYCOPHENOLATE MOFETIL
     Dosage: REDUCED BY HALF
  4. PREDNISONE [Suspect]
     Active Substance: PREDNISONE
     Indication: Renal transplant
     Dosage: 5 MILLIGRAMS, 24 HOURS, DURATION: 3 YEARS
  5. PREDNISONE [Suspect]
     Active Substance: PREDNISONE
     Dosage: 10 MILLIGRAM, 24 HOURS
  6. PREDNISONE [Suspect]
     Active Substance: PREDNISONE
     Dosage: PJP DOSE

REACTIONS (7)
  - Meningitis herpes [Unknown]
  - Disseminated cryptococcosis [Unknown]
  - Klebsiella infection [Unknown]
  - Pseudomonas infection [Unknown]
  - Pneumocystis jirovecii pneumonia [Unknown]
  - Septic shock [Unknown]
  - Multiple organ dysfunction syndrome [Unknown]
